FAERS Safety Report 11012346 (Version 1)
Quarter: 2015Q2

REPORT INFORMATION
  Report Type: Spontaneous
  Country: US (occurrence: None)
  Receive Date: 20150410
  Receipt Date: 20150410
  Transmission Date: 20150821
  Serious: Yes (Hospitalization)
  Sender: FDA-Public Use
  Company Number: None

PATIENT
  Age: 69 Year
  Sex: Male
  Weight: 83.5 kg

DRUGS (2)
  1. CARBOPLATIN. [Suspect]
     Active Substance: CARBOPLATIN
     Dates: end: 20150306
  2. TAXOL [Suspect]
     Active Substance: PACLITAXEL
     Dates: end: 20150306

REACTIONS (7)
  - Dehydration [None]
  - Decreased activity [None]
  - Syncope [None]
  - Secretion discharge [None]
  - Blood pressure decreased [None]
  - Dizziness [None]
  - Nausea [None]

NARRATIVE: CASE EVENT DATE: 20150316
